FAERS Safety Report 11896459 (Version 1)
Quarter: 2016Q1

REPORT INFORMATION
  Report Type: Spontaneous
  Country: BR (occurrence: BR)
  Receive Date: 20160107
  Receipt Date: 20160107
  Transmission Date: 20160526
  Serious: Yes (Hospitalization, Other)
  Sender: FDA-Public Use
  Company Number: BR-JNJFOC-20160102347

PATIENT
  Age: 77 Year
  Sex: Male
  Weight: 74 kg

DRUGS (4)
  1. TEGRETOL [Concomitant]
     Active Substance: CARBAMAZEPINE
     Indication: SEIZURE
     Route: 048
     Dates: start: 2000
  2. XARELTO [Suspect]
     Active Substance: RIVAROXABAN
     Indication: OSTEOARTHRITIS
     Route: 048
  3. RIVOTRIL [Concomitant]
     Active Substance: CLONAZEPAM
     Indication: INSOMNIA
     Route: 048
  4. ROSUVASTATIN [Suspect]
     Active Substance: ROSUVASTATIN
     Indication: BLOOD CHOLESTEROL
     Route: 048
     Dates: start: 2000

REACTIONS (5)
  - Malaise [Unknown]
  - Blood test abnormal [Unknown]
  - Product use issue [Unknown]
  - Haematemesis [Unknown]
  - Surgery [Unknown]

NARRATIVE: CASE EVENT DATE: 20151101
